FAERS Safety Report 23793196 (Version 3)
Quarter: 2024Q3

REPORT INFORMATION
  Report Type: Report from Study
  Country: FR (occurrence: FR)
  Receive Date: 20240429
  Receipt Date: 20240925
  Transmission Date: 20241017
  Serious: Yes (Other)
  Sender: EXELIXIS
  Company Number: FR-IPSEN Group, Research and Development-2024-06885

PATIENT
  Age: 69 Year
  Sex: Male
  Weight: 66 kg

DRUGS (18)
  1. CABOZANTINIB [Suspect]
     Active Substance: CABOZANTINIB
     Indication: Renal cell carcinoma
     Dosage: 40 MG, QD
     Route: 048
     Dates: start: 20240209, end: 20240417
  2. CABOZANTINIB [Suspect]
     Active Substance: CABOZANTINIB
     Dosage: 30 MG, QD
     Route: 048
     Dates: start: 20240503
  3. NIVOLUMAB [Suspect]
     Active Substance: NIVOLUMAB
     Indication: Renal cell carcinoma
     Dosage: ONCE
     Route: 042
     Dates: start: 20240209
  4. NIVOLUMAB [Suspect]
     Active Substance: NIVOLUMAB
     Dosage: ONCE
     Route: 042
     Dates: start: 20240223
  5. NIVOLUMAB [Suspect]
     Active Substance: NIVOLUMAB
     Dosage: ONCE
     Route: 042
     Dates: start: 20240308
  6. NIVOLUMAB [Suspect]
     Active Substance: NIVOLUMAB
     Dosage: ONCE
     Route: 042
     Dates: start: 20240322
  7. NIVOLUMAB [Suspect]
     Active Substance: NIVOLUMAB
     Dosage: ONCE
     Route: 042
     Dates: start: 20240405
  8. NIVOLUMAB [Suspect]
     Active Substance: NIVOLUMAB
     Dosage: ONCE
     Route: 042
     Dates: start: 20240503
  9. NIVOLUMAB [Suspect]
     Active Substance: NIVOLUMAB
     Dosage: ONCE
     Route: 042
     Dates: start: 20240531
  10. NIVOLUMAB [Suspect]
     Active Substance: NIVOLUMAB
     Dosage: ONCE
     Route: 042
     Dates: start: 20240628
  11. NIVOLUMAB [Suspect]
     Active Substance: NIVOLUMAB
     Dosage: ONCE
     Route: 042
     Dates: start: 20240726
  12. NIVOLUMAB [Suspect]
     Active Substance: NIVOLUMAB
     Dosage: ONCE
     Route: 042
     Dates: start: 20240823
  13. SKENAN [Concomitant]
     Active Substance: MORPHINE SULFATE
     Indication: Prophylaxis
     Route: 048
     Dates: end: 20240823
  14. POLYETHYLENE GLYCOLS [Concomitant]
     Active Substance: POLYETHYLENE GLYCOLS
     Indication: Prophylaxis
     Route: 048
  15. ACETAMINOPHEN\CODEINE PHOSPHATE [Concomitant]
     Active Substance: ACETAMINOPHEN\CODEINE PHOSPHATE
     Indication: Prophylaxis
     Route: 048
  16. HYDROCHLOROTHIAZIDE [Concomitant]
     Active Substance: HYDROCHLOROTHIAZIDE
     Indication: Prophylaxis
     Route: 048
  17. AMLODIPINE [Concomitant]
     Active Substance: AMLODIPINE BESYLATE
     Indication: Hypertension
     Route: 048
  18. PANTOPRAZOLE [Concomitant]
     Active Substance: PANTOPRAZOLE
     Indication: Prophylaxis
     Route: 048

REACTIONS (3)
  - Hepatic cytolysis [Recovering/Resolving]
  - Gastrooesophageal reflux disease [Recovered/Resolved]
  - Anaemia [Recovering/Resolving]

NARRATIVE: CASE EVENT DATE: 20240223
